FAERS Safety Report 5727123-9 (Version None)
Quarter: 2008Q2

REPORT INFORMATION
  Report Type: 
  Country: None (occurrence: None)
  Receive Date: 20080505
  Receipt Date: 20080421
  Transmission Date: 20081010
  Serious: Yes (Other)
  Sender: FDA-Public Use
  Company Number: US-BAYER-200820127NA

PATIENT
  Age: 36 Year
  Sex: Female
  Weight: 77 kg

DRUGS (15)
  1. MIRENA [Suspect]
     Indication: CONTRACEPTION
     Route: 015
     Dates: start: 20080409, end: 20080418
  2. FORTACAL [Concomitant]
     Indication: OSTEOPENIA
  3. CALCIUM + D [Concomitant]
     Indication: OSTEOPENIA
  4. AVINZA [Concomitant]
     Indication: DRUG USE FOR UNKNOWN INDICATION
  5. FLUOXETINE [Concomitant]
     Indication: DRUG USE FOR UNKNOWN INDICATION
  6. XANAX [Concomitant]
     Indication: DRUG USE FOR UNKNOWN INDICATION
  7. XANAX [Concomitant]
  8. AMBIEN CR [Concomitant]
     Indication: DRUG USE FOR UNKNOWN INDICATION
  9. TRAZODONE HCL [Concomitant]
     Indication: DRUG USE FOR UNKNOWN INDICATION
  10. ZOMIG [Concomitant]
     Indication: DRUG USE FOR UNKNOWN INDICATION
  11. ACTIQ [Concomitant]
     Indication: DRUG USE FOR UNKNOWN INDICATION
  12. PERCOCET [Concomitant]
     Indication: DRUG USE FOR UNKNOWN INDICATION
  13. PHENERGAN [Concomitant]
     Indication: DRUG USE FOR UNKNOWN INDICATION
  14. FLEXERIL [Concomitant]
     Indication: DRUG USE FOR UNKNOWN INDICATION
  15. ALLEGRA D 24 HOUR [Concomitant]
     Indication: DRUG USE FOR UNKNOWN INDICATION

REACTIONS (6)
  - ABDOMINAL PAIN LOWER [None]
  - BACK PAIN [None]
  - IUD MIGRATION [None]
  - POST PROCEDURAL DISCOMFORT [None]
  - POST PROCEDURAL HAEMORRHAGE [None]
  - PROCEDURAL PAIN [None]
